FAERS Safety Report 8388577-5 (Version None)
Quarter: 2012Q2

REPORT INFORMATION
  Report Type: 
  Country: None (occurrence: None)
  Receive Date: 20120525
  Receipt Date: 20120518
  Transmission Date: 20120825
  Serious: Yes (Hospitalization)
  Sender: FDA-Public Use
  Company Number: JP-AMGEN-JPNCT2012014934

PATIENT
  Age: 65 Year
  Sex: Female
  Weight: 38 kg

DRUGS (9)
  1. VECTIBIX [Suspect]
     Dosage: 6 MG/KG, Q2WK
     Route: 041
     Dates: start: 20120110
  2. MARGENOR [Concomitant]
     Indication: ANTIDEPRESSANT THERAPY
     Route: 048
  3. UNDEPRE [Concomitant]
     Indication: ANTIDEPRESSANT THERAPY
     Route: 048
  4. AMITRIPTYLINE HCL [Concomitant]
     Indication: ANTIDEPRESSANT THERAPY
     Route: 048
  5. TS 1 [Concomitant]
     Indication: COLORECTAL CANCER
     Route: 048
     Dates: start: 20110913, end: 20111227
  6. TS 1 [Concomitant]
     Route: 048
     Dates: start: 20120117, end: 20120208
  7. VECTIBIX [Suspect]
     Indication: COLORECTAL CANCER
     Dosage: 6 MG/KG, Q2WK
     Route: 041
     Dates: start: 20111011, end: 20111213
  8. LAC B [Concomitant]
     Indication: GASTROINTESTINAL DISORDER
     Route: 048
  9. OVULANZE [Concomitant]
     Indication: GASTROOESOPHAGEAL REFLUX DISEASE
     Route: 048

REACTIONS (6)
  - DEHYDRATION [None]
  - MALAISE [None]
  - HYPOMAGNESAEMIA [None]
  - DECREASED APPETITE [None]
  - ALOPECIA [None]
  - DYSPNOEA [None]
